FAERS Safety Report 11639457 (Version 1)
Quarter: 2015Q4

REPORT INFORMATION
  Report Type: Spontaneous
  Country: US (occurrence: None)
  Receive Date: 20151016
  Receipt Date: 20151016
  Transmission Date: 20160304
  Serious: Yes (Other)
  Sender: FDA-Public Use
  Company Number: None

PATIENT
  Age: 58 Year
  Sex: Male
  Weight: 103 kg

DRUGS (1)
  1. HEPARIN [Suspect]
     Active Substance: HEPARIN SODIUM
     Indication: PULMONARY EMBOLISM
     Dosage: 1550 UNITS PER HOUR IV
     Route: 042
     Dates: start: 20150827, end: 20150903

REACTIONS (2)
  - Subdural haematoma [None]
  - Haemorrhage [None]

NARRATIVE: CASE EVENT DATE: 20150829
